FAERS Safety Report 23210968 (Version 1)
Quarter: 2023Q4

REPORT INFORMATION
  Report Type: Spontaneous
  Country: US (occurrence: None)
  Receive Date: 20231120
  Receipt Date: 20231120
  Transmission Date: 20240109
  Serious: Yes (Hospitalization)
  Sender: FDA-Public Use
  Company Number: None

PATIENT
  Age: 67 Year
  Sex: Male

DRUGS (1)
  1. LENALIDOMIDE [Suspect]
     Active Substance: LENALIDOMIDE
     Indication: Plasma cell myeloma
     Dosage: 10MG QD ORAL??THERAPYSTOP: ON HOLD
     Dates: start: 20230908

REACTIONS (7)
  - Confusional state [None]
  - Hyporesponsive to stimuli [None]
  - Pyrexia [None]
  - Tachycardia [None]
  - Clostridium test positive [None]
  - Leukopenia [None]
  - Blood pressure decreased [None]

NARRATIVE: CASE EVENT DATE: 20231120
